FAERS Safety Report 8345607-4 (Version None)
Quarter: 2012Q2

REPORT INFORMATION
  Report Type: 
  Country: None (occurrence: None)
  Receive Date: 20120508
  Receipt Date: 20120430
  Transmission Date: 20120825
  Serious: Yes (Other)
  Sender: FDA-Public Use
  Company Number: FR-ROCHE-1040490

PATIENT
  Sex: Female

DRUGS (8)
  1. XOLAIR [Suspect]
     Indication: ASTHMA
     Dates: start: 20111001
  2. XOLAIR [Suspect]
  3. XYZAL [Concomitant]
  4. BECLOMETASONE DIPROPIONATE/FORMOTEROL FUMARATE [Concomitant]
  5. XOLAIR [Suspect]
     Dates: start: 20111101, end: 20111101
  6. SINGULAIR [Concomitant]
  7. BILASTINE [Concomitant]
  8. VENTOLIN [Concomitant]

REACTIONS (1)
  - ANGIOEDEMA [None]
